FAERS Safety Report 23754546 (Version 1)
Quarter: 2024Q2

REPORT INFORMATION
  Report Type: Spontaneous
  Country: US (occurrence: US)
  Receive Date: 20240418
  Receipt Date: 20240418
  Transmission Date: 20240716
  Serious: Yes (Hospitalization, Other)
  Sender: FDA-Public Use
  Company Number: US-BRISTOL-MYERS SQUIBB COMPANY-2024-056714

PATIENT
  Age: 82 Year
  Sex: Male
  Weight: 122.74 kg

DRUGS (2)
  1. REVLIMID [Suspect]
     Active Substance: LENALIDOMIDE
     Indication: Plasma cell myeloma
     Dosage: D?21 DAYS THEN 7 DAYS OFF
     Route: 048
     Dates: start: 20230525
  2. REVLIMID [Suspect]
     Active Substance: LENALIDOMIDE
     Dosage: 1 WEEK ON AND 1 WEEK OFF

REACTIONS (2)
  - Rash [Unknown]
  - Off label use [Unknown]
